FAERS Safety Report 14022400 (Version 1)
Quarter: 2017Q3

REPORT INFORMATION
  Report Type: Spontaneous
  Country: NL (occurrence: NL)
  Receive Date: 20170929
  Receipt Date: 20170929
  Transmission Date: 20171128
  Serious: Yes (Hospitalization)
  Sender: FDA-Public Use
  Company Number: PHHY2017NL142297

PATIENT
  Age: 22 Year
  Sex: Male

DRUGS (1)
  1. METHYLPHENIDATE. [Suspect]
     Active Substance: METHYLPHENIDATE
     Indication: PRODUCT USED FOR UNKNOWN INDICATION
     Dosage: 4.0 MG/KG, UNK
     Route: 048

REACTIONS (5)
  - Toxicity to various agents [Unknown]
  - Hypertension [Unknown]
  - Agitation [Unknown]
  - Mydriasis [Unknown]
  - Tachycardia [Unknown]
